FAERS Safety Report 6736523-X (Version None)
Quarter: 2010Q2

REPORT INFORMATION
  Report Type: 
  Country: None (occurrence: None)
  Receive Date: 20100519
  Receipt Date: 20100507
  Transmission Date: 20101027
  Serious: Yes (Hospitalization)
  Sender: FDA-Public Use
  Company Number: WAES 1004USA00652

PATIENT
  Age: 66 Year
  Sex: Male

DRUGS (13)
  1. ISENTRESS [Suspect]
     Indication: HIV INFECTION
     Dosage: 400 MG/BID PO
     Route: 048
     Dates: start: 20090603
  2. TAB BLINDED THERAPY [Suspect]
     Indication: HIV INFECTION
     Dosage: PO
     Route: 048
     Dates: start: 20060607, end: 20090602
  3. TAB DARUNAVIR [Suspect]
     Indication: HIV INFECTION
     Dosage: 300 MG/BID PO
     Route: 048
     Dates: start: 20060607
  4. RITONAVIR [Suspect]
     Indication: HIV INFECTION
     Dosage: 100 MG/BID PO
     Route: 048
     Dates: start: 20060607
  5. TAB ETRAVIRINE [Suspect]
     Indication: HIV INFECTION
     Dosage: 100 MG/BID PO
     Route: 048
     Dates: start: 20080326
  6. TENOFOVIR DISOPROXIL FUMARATE [Suspect]
     Indication: HIV INFECTION
     Dates: start: 20060607
  7. TAB KIVEXA (ABACAVIR SULFATE (+) LAMIVUDINE) [Suspect]
     Indication: HIV INFECTION
     Dosage: 600/300 MG/DAILY PO
     Route: 048
     Dates: start: 20091119
  8. AUGMENTIN [Concomitant]
  9. BACTRIM [Concomitant]
  10. GASTRO GEL [Concomitant]
  11. IMODIUM [Concomitant]
  12. VALTREX [Concomitant]
  13. ACYCLOVIR [Concomitant]

REACTIONS (4)
  - ATELECTASIS [None]
  - LUNG CONSOLIDATION [None]
  - PLEURAL EFFUSION [None]
  - PNEUMONIA [None]
